FAERS Safety Report 21298394 (Version 1)
Quarter: 2022Q3

REPORT INFORMATION
  Report Type: Spontaneous
  Country: JP (occurrence: JP)
  Receive Date: 20220906
  Receipt Date: 20220906
  Transmission Date: 20221027
  Serious: Yes (Other)
  Sender: FDA-Public Use
  Company Number: JP-PFIZER INC-202201111792

PATIENT
  Sex: Female

DRUGS (1)
  1. PREMARIN [Suspect]
     Active Substance: ESTROGENS, CONJUGATED
     Dosage: PRESCRIBED FOR 2 WEEKS
     Route: 048

REACTIONS (4)
  - Blindness [Unknown]
  - Visual impairment [Unknown]
  - Visual acuity reduced [Unknown]
  - Nausea [Unknown]
